FAERS Safety Report 14632907 (Version 2)
Quarter: 2018Q1

REPORT INFORMATION
  Report Type: Spontaneous
  Country: US (occurrence: US)
  Receive Date: 20180313
  Receipt Date: 20180319
  Transmission Date: 20180509
  Serious: Yes (Other)
  Sender: FDA-Public Use
  Company Number: US-SUNOVION-2018SUN000770

PATIENT
  Sex: Female

DRUGS (9)
  1. CANNABIS SATIVA OIL [Concomitant]
     Active Substance: CANNABIS SATIVA SUBSP. INDICA TOP
     Dosage: 0.3 ML, BID
  2. APTIOM [Suspect]
     Active Substance: ESLICARBAZEPINE ACETATE
     Indication: EPILEPSY
  3. ONSIA [Concomitant]
     Dosage: 1 ML, BID
  4. FYCOMPA [Concomitant]
     Active Substance: PERAMPANEL
     Dosage: 4 ML, QD
  5. APTIOM [Suspect]
     Active Substance: ESLICARBAZEPINE ACETATE
     Indication: SEIZURE
     Dosage: 200 MG, BID
     Route: 048
  6. FYCOMPA [Concomitant]
     Active Substance: PERAMPANEL
     Dosage: 8 ML, HS
  7. CLONAZEPAM. [Concomitant]
     Active Substance: CLONAZEPAM
     Dosage: 2.5 ML, BID
  8. CLONAZEPAM. [Concomitant]
     Active Substance: CLONAZEPAM
     Dosage: 5 ML, BID
  9. DEPAKENE [Concomitant]
     Active Substance: VALPROIC ACID
     Dosage: 3 ML, TID

REACTIONS (2)
  - Seizure [Not Recovered/Not Resolved]
  - Drug administered to patient of inappropriate age [Unknown]
